FAERS Safety Report 6688500-5 (Version None)
Quarter: 2010Q2

REPORT INFORMATION
  Report Type: 
  Country: None (occurrence: None)
  Receive Date: 20100420
  Receipt Date: 20100405
  Transmission Date: 20101027
  Serious: Yes (Other)
  Sender: FDA-Public Use
  Company Number: US-ALEXION-A201000163

PATIENT
  Sex: Male

DRUGS (14)
  1. SOLIRIS [Suspect]
     Indication: PAROXYSMAL NOCTURNAL HAEMOGLOBINURIA
     Dosage: 600 MG, QW
     Route: 042
     Dates: start: 20090429, end: 20090520
  2. SOLIRIS [Suspect]
     Dosage: 900 MG, Q2W
     Dates: start: 20090610, end: 20090819
  3. SOLIRIS [Suspect]
     Dosage: 900 MG, Q12D
  4. EFFEXOR [Concomitant]
     Indication: ANXIETY
     Dosage: UNK
     Route: 048
  5. TRAZODONE [Concomitant]
     Dosage: 50 MG, QD HS
     Route: 048
  6. COUMADIN [Concomitant]
     Dosage: UNK
     Route: 048
  7. FLOMAX [Concomitant]
     Dosage: 4 MG, QD
     Route: 048
  8. IMODIUM                            /00384302/ [Concomitant]
     Dosage: UNK
     Route: 048
  9. MULTIVITAMIN                       /00831701/ [Concomitant]
     Dosage: UNK
     Route: 048
  10. FLONASE [Concomitant]
     Dosage: UNK
     Route: 045
  11. EXJADE [Concomitant]
     Dosage: 100 MG, QD
     Route: 048
  12. PREDNISONE [Concomitant]
     Dosage: 20 MG, BID
     Route: 048
  13. LASIX [Concomitant]
     Dosage: 20 MG, QD
     Route: 048
  14. POTASSIUM [Concomitant]
     Dosage: UNK
     Route: 048

REACTIONS (4)
  - ANXIETY [None]
  - DEPRESSION [None]
  - HAEMOGLOBIN DECREASED [None]
  - MALAISE [None]
